FAERS Safety Report 9380664 (Version 3)
Quarter: 2013Q3

REPORT INFORMATION
  Report Type: Spontaneous
  Country: US (occurrence: US)
  Receive Date: 20130702
  Receipt Date: 20130723
  Transmission Date: 20140515
  Serious: Yes (Death)
  Sender: FDA-Public Use
  Company Number: US-GILEAD-2013-0078444

PATIENT
  Sex: Female

DRUGS (2)
  1. LETAIRIS [Suspect]
     Indication: PULMONARY HYPERTENSION
     Dosage: 10 MG, QD
     Route: 048
     Dates: start: 20120406
  2. LETAIRIS [Suspect]
     Indication: CREST SYNDROME

REACTIONS (3)
  - Sudden cardiac death [Fatal]
  - Pulmonary hypertension [Fatal]
  - Scleroderma [Fatal]
